FAERS Safety Report 7284100-7 (Version None)
Quarter: 2011Q1

REPORT INFORMATION
  Report Type: 
  Country: None (occurrence: None)
  Receive Date: 20110209
  Receipt Date: 20110131
  Transmission Date: 20110831
  Serious: Yes (Hospitalization)
  Sender: FDA-Public Use
  Company Number: AT-PFIZER INC-2010179080

PATIENT
  Age: 72 Year
  Sex: Male

DRUGS (15)
  1. ISOSORBIDE MONONITRATE [Concomitant]
     Dosage: 80 MG, UNK
     Dates: start: 20101127
  2. NOVOMIX [Concomitant]
     Dosage: UNK
     Dates: start: 20101127
  3. BUSCOPAN [Concomitant]
     Dosage: 1 DF, 1X/DAY
     Dates: start: 20101127, end: 20101130
  4. LISINOPRIL [Concomitant]
     Dosage: 10 MG, UNK
  5. ASPIRIN [Concomitant]
     Dosage: 100 MG, 1X/DAY
  6. IRINOTECAN HCL [Suspect]
     Indication: GASTRIC CANCER
     Dosage: 125 MG/M2, UNK
     Route: 042
     Dates: start: 20101118, end: 20101130
  7. OXALIPLATIN [Suspect]
     Indication: GASTRIC CANCER
     Dosage: 85 MG/M2, UNK
     Route: 042
     Dates: start: 20101118, end: 20101130
  8. NAVOBAN [Concomitant]
     Dosage: 5 MG, UNK
     Dates: start: 20101119
  9. BUSCOPAN [Concomitant]
     Dosage: 10 MG, UNK
     Dates: start: 20101119
  10. AMLODIPINE [Concomitant]
     Dosage: 10 MG, UNK
  11. NITROLINGUAL PUMPSPRAY [Concomitant]
     Dosage: UNK
     Dates: start: 20101127
  12. SELOKEN RETARD [Concomitant]
     Dosage: 47.5 MG, 1X/DAY
  13. MOTILIUM [Concomitant]
     Dosage: 10 MG, UNK
     Dates: start: 20101127
  14. AVASTIN [Suspect]
     Indication: GASTRIC CANCER
     Dosage: 5 MG/KG, UNK
     Route: 042
     Dates: start: 20101118, end: 20101130
  15. SIMVASTATIN [Concomitant]
     Dosage: 20 MG, UNK

REACTIONS (3)
  - ANGINA PECTORIS [None]
  - CHEST PAIN [None]
  - HAEMATOCHEZIA [None]
